FAERS Safety Report 17252868 (Version 2)
Quarter: 2020Q1

REPORT INFORMATION
  Report Type: Spontaneous
  Country: DE (occurrence: DE)
  Receive Date: 20200109
  Receipt Date: 20200206
  Transmission Date: 20200409
  Serious: Yes (Congenital Anomaly, Other)
  Sender: FDA-Public Use
  Company Number: DE-MYLANLABS-2020M1001875

PATIENT
  Age: 10 Month
  Sex: Male
  Weight: 3.82 kg

DRUGS (1)
  1. LAMOTRIGINE. [Suspect]
     Active Substance: LAMOTRIGINE
     Indication: EPILEPSY
     Dosage: UNK MOTHER DOSE: 400 [MG/D (200-0-200)]
     Route: 063

REACTIONS (4)
  - Atrial septal defect [Unknown]
  - Patent ductus arteriosus [Recovering/Resolving]
  - Foetal exposure during pregnancy [Recovered/Resolved]
  - Apparent life threatening event [Recovered/Resolved]
